FAERS Safety Report 5744522-X (Version None)
Quarter: 2008Q2

REPORT INFORMATION
  Report Type: 
  Country: None (occurrence: None)
  Receive Date: 20080520
  Receipt Date: 20080514
  Transmission Date: 20081010
  Serious: Yes (Death)
  Sender: FDA-Public Use
  Company Number: US-PURDUE-USA_2008_0032490

PATIENT
  Age: 61 Year
  Sex: Female
  Weight: 48 kg

DRUGS (4)
  1. OXYCODONE HCL [Suspect]
     Indication: PAIN
     Dosage: 960 MG, DAILY
     Route: 048
     Dates: start: 20030205, end: 20080416
  2. ATENOLOL [Concomitant]
     Indication: HYPERTENSION
     Dosage: 50 MG, DAILY
  3. DIAZEPAM [Concomitant]
     Indication: MUSCLE SPASMS
     Dosage: 5 MG, SEE TEXT
     Dates: end: 20080416
  4. PLAVIX [Concomitant]
     Indication: CEREBROVASCULAR ACCIDENT PROPHYLAXIS
     Dosage: 75 MG, DAILY
     Dates: start: 20010123, end: 20080416

REACTIONS (4)
  - CARDIAC FAILURE CONGESTIVE [None]
  - DYSPHAGIA [None]
  - NASOPHARYNGITIS [None]
  - RESPIRATION ABNORMAL [None]
